FAERS Safety Report 8855993 (Version 1)
Quarter: 2012Q4

REPORT INFORMATION
  Report Type: 
  Country: US (occurrence: US)
  Receive Date: 20121023
  Receipt Date: 20121023
  Transmission Date: 20130627
  Serious: No
  Sender: FDA-Public Use
  Company Number: US-AMGEN-USASP2012058260

PATIENT
  Age: 68 Year
  Sex: Female

DRUGS (10)
  1. ENBREL [Suspect]
     Indication: RHEUMATOID ARTHRITIS
     Dosage: 50 mg, qwk
     Route: 058
  2. LEXAPRO [Concomitant]
     Dosage: 10 mg, UNK
     Route: 048
  3. AMITIZA [Concomitant]
     Dosage: 24 mug, UNK
     Route: 048
  4. CALCIUM                            /00060701/ [Concomitant]
     Dosage: 500 UNK, UNK
     Route: 048
  5. FLUTICASONE                        /00972202/ [Concomitant]
     Dosage: 50 mug, UNK
  6. ALIGN [Concomitant]
     Dosage: 4 mg, UNK
     Route: 048
  7. TYLENOL /00020001/ [Concomitant]
     Dosage: 325 mg, UNK
     Route: 048
  8. VITAMIN D /00107901/ [Concomitant]
     Dosage: 2000 unit, UNK
     Route: 048
  9. MULTIVITAMIN                       /00097801/ [Concomitant]
     Dosage: UNK
     Route: 048
  10. FOLIC ACID [Concomitant]
     Dosage: UNK
     Route: 048

REACTIONS (1)
  - Injection site pain [Unknown]
